FAERS Safety Report 15362491 (Version 3)
Quarter: 2019Q1

REPORT INFORMATION
  Report Type: Not Available
  Country: US (occurrence: US)
  Receive Date: 20180907
  Receipt Date: 20190102
  Transmission Date: 20190417
  Serious: Yes (Other)
  Sender: FDA-Public Use
  Company Number: US-NEUROCRINE BIOSCIENCES INC.-2018NBI02598

PATIENT
  Sex: Male

DRUGS (3)
  1. INGREZZA [Suspect]
     Active Substance: VALBENAZINE
     Route: 048
     Dates: end: 20180823
  2. INGREZZA [Suspect]
     Active Substance: VALBENAZINE
     Route: 048
     Dates: start: 20180522, end: 20180708
  3. INGREZZA [Suspect]
     Active Substance: VALBENAZINE
     Indication: TARDIVE DYSKINESIA
     Route: 048
     Dates: start: 20180502

REACTIONS (7)
  - Adverse drug reaction [Unknown]
  - Insomnia [Unknown]
  - Anxiety [Unknown]
  - Swollen tongue [Not Recovered/Not Resolved]
  - Pruritus [Recovered/Resolved]
  - Depression [Unknown]
  - Rash generalised [Unknown]

NARRATIVE: CASE EVENT DATE: 2018
